FAERS Safety Report 25048087 (Version 2)
Quarter: 2025Q2

REPORT INFORMATION
  Report Type: Report from Study
  Country: US (occurrence: US)
  Receive Date: 20250306
  Receipt Date: 20250403
  Transmission Date: 20250717
  Serious: Yes (Other)
  Sender: ABBVIE
  Company Number: US-ABBVIE-6158329

PATIENT
  Sex: Male

DRUGS (2)
  1. HUMIRA [Suspect]
     Active Substance: ADALIMUMAB
     Indication: Crohn^s disease
     Route: 058
  2. HUMIRA [Suspect]
     Active Substance: ADALIMUMAB
     Route: 058
     Dates: start: 20201029

REACTIONS (6)
  - Gastric ulcer haemorrhage [Unknown]
  - Skin ulcer [Recovering/Resolving]
  - Spinal operation [Recovering/Resolving]
  - Abdominal pain upper [Unknown]
  - Systemic lupus erythematosus [Recovering/Resolving]
  - Blood glucose increased [Unknown]
